FAERS Safety Report 9316333 (Version 1)
Quarter: 2013Q2

REPORT INFORMATION
  Report Type: Spontaneous
  Country: US (occurrence: None)
  Receive Date: 20130528
  Receipt Date: 20130528
  Transmission Date: 20140414
  Serious: Yes (Other)
  Sender: FDA-Public Use
  Company Number: None

PATIENT
  Age: 66 Year
  Sex: Female
  Weight: 60.33 kg

DRUGS (1)
  1. OXYCODONE/ACETAMINOPHEN [Suspect]
     Dosage: 1-2 TABLETS 4-6 HOURS FOR PAIN
     Dates: start: 20130411, end: 20130419

REACTIONS (3)
  - Muscle spasms [None]
  - Urticaria [None]
  - Pain [None]
